FAERS Safety Report 5363599-7 (Version None)
Quarter: 2007Q2

REPORT INFORMATION
  Report Type: 
  Country: None (occurrence: None)
  Receive Date: 20070620
  Receipt Date: 20070613
  Transmission Date: 20071010
  Serious: Yes (Hospitalization)
  Sender: FDA-Public Use
  Company Number: B0470666A

PATIENT
  Age: 37 Year
  Sex: Male

DRUGS (5)
  1. COMBIVIR [Suspect]
     Indication: HIV INFECTION
     Dosage: 1TAB TWICE PER DAY
     Route: 048
     Dates: start: 20040612, end: 20070416
  2. NEVIRAPINE [Suspect]
     Indication: HIV INFECTION
     Dosage: 200MG PER DAY
     Dates: start: 20040612
  3. COTRIMOXAZOLE [Suspect]
     Dosage: 960MG PER DAY
     Dates: start: 20040525, end: 20070416
  4. D4T [Concomitant]
     Dosage: 30MG TWICE PER DAY
     Dates: start: 20070416
  5. LAMIVUDINE [Concomitant]
     Dosage: 150MG TWICE PER DAY
     Dates: start: 20070416

REACTIONS (6)
  - DIARRHOEA [None]
  - DYSPNOEA [None]
  - NEUTROPENIC SEPSIS [None]
  - PYREXIA [None]
  - SEPSIS [None]
  - VOMITING [None]
